FAERS Safety Report 5033697-6 (Version None)
Quarter: 2006Q2

REPORT INFORMATION
  Report Type: 
  Country: None (occurrence: None)
  Receive Date: 20060623
  Receipt Date: 20060614
  Transmission Date: 20061013
  Serious: Yes (Other)
  Sender: FDA-Public Use
  Company Number: PHFR2006GB01977

PATIENT
  Age: 69 Year
  Sex: Male

DRUGS (9)
  1. OXCARBAZEPINE [Suspect]
     Indication: NEURALGIA
     Dosage: 300 MG, TID
     Route: 048
     Dates: start: 20060222, end: 20060309
  2. ATORVASTATIN CALCIUM [Concomitant]
     Route: 048
  3. BISOPROLOL [Concomitant]
     Route: 048
  4. DETRUSITOL [Concomitant]
     Route: 065
  5. FENTANYL [Concomitant]
     Dosage: 50UG
     Route: 065
  6. FLUOXETINE [Concomitant]
     Route: 048
  7. FOSINOPRIL [Concomitant]
     Route: 048
  8. HYDROCORTISONE [Concomitant]
     Route: 048
  9. TAMSULOSIN HCL [Concomitant]
     Route: 048

REACTIONS (3)
  - DYSPHONIA [None]
  - HALLUCINATIONS, MIXED [None]
  - NIGHTMARE [None]
